FAERS Safety Report 5419680-7 (Version None)
Quarter: 2007Q3

REPORT INFORMATION
  Report Type: 
  Country: None (occurrence: None)
  Receive Date: 20070820
  Receipt Date: 20070810
  Transmission Date: 20080115
  Serious: Yes (Death)
  Sender: FDA-Public Use
  Company Number: IN-ELI_LILLY_AND_COMPANY-IN200708002424

PATIENT
  Age: 50 Year
  Sex: Male
  Weight: 66 kg

DRUGS (23)
  1. PEMETREXED [Suspect]
     Indication: SMALL CELL LUNG CANCER METASTATIC
     Dosage: 800 MG
     Route: 042
     Dates: start: 20070806
  2. RICONIA [Concomitant]
     Dosage: UNK, UNKNOWN
     Route: 065
     Dates: start: 20070728
  3. PANTOPRAZOLE SODIUM [Concomitant]
     Indication: GASTRITIS PROPHYLAXIS
     Dosage: UNK, UNKNOWN
     Route: 065
     Dates: start: 20070728
  4. REGLAN [Concomitant]
     Indication: VOMITING
     Dosage: UNK, UNKNOWN
     Route: 065
     Dates: start: 20070728
  5. THEOPHYLLINE [Concomitant]
     Indication: BRONCHOSPASM
     Dosage: UNK, UNKNOWN
     Route: 065
     Dates: start: 20070728
  6. UDILIV [Concomitant]
     Dosage: UNK, UNKNOWN
     Route: 065
     Dates: start: 20070801
  7. ALLOPURINOL [Concomitant]
     Indication: HYPERURICAEMIA
     Dosage: UNK, UNKNOWN
     Route: 065
     Dates: start: 20070801
  8. ATIVAN [Concomitant]
     Indication: SEDATIVE THERAPY
     Dosage: UNK, UNKNOWN
     Route: 065
     Dates: start: 20070801
  9. TRANEXAMIC ACID [Concomitant]
     Indication: COAGULOPATHY
     Dosage: UNK, UNKNOWN
     Route: 065
     Dates: start: 20070801
  10. DUPHALAC [Concomitant]
     Indication: LAXATIVE SUPPORTIVE CARE
     Dosage: UNK, UNKNOWN
     Route: 065
     Dates: start: 20070801
  11. SERENACE [Concomitant]
     Indication: SEDATIVE THERAPY
     Dosage: UNK, UNKNOWN
     Route: 065
     Dates: start: 20070806, end: 20070809
  12. AUGMENTIN                               /SCH/ [Concomitant]
     Dosage: UNK, UNKNOWN
     Route: 065
     Dates: start: 20070804, end: 20070808
  13. AMIKACIN [Concomitant]
     Dosage: UNK, UNKNOWN
     Route: 065
     Dates: start: 20070804, end: 20070808
  14. METROGYL [Concomitant]
     Dosage: UNK, UNKNOWN
     Route: 065
     Dates: start: 20070804, end: 20070808
  15. VITAMIN K [Concomitant]
     Indication: COAGULATION TEST ABNORMAL
     Dosage: UNK, UNKNOWN
     Route: 065
     Dates: start: 20070808
  16. DUOLIN [Concomitant]
     Dosage: UNK, UNKNOWN
     Dates: start: 20070804
  17. FLUANXOL [Concomitant]
     Indication: ANTIDEPRESSANT THERAPY
     Dosage: UNK, UNKNOWN
     Route: 065
     Dates: start: 20070804
  18. VOVERAN [Concomitant]
     Indication: PAIN
     Dosage: UNK, UNKNOWN
     Route: 065
     Dates: start: 20070728, end: 20070731
  19. CALMPOSE [Concomitant]
     Indication: INSOMNIA
     Dosage: UNK, UNKNOWN
     Route: 065
     Dates: start: 20070728, end: 20070731
  20. CARBOPLATIN [Suspect]
     Indication: NON-SMALL CELL LUNG CANCER METASTATIC
     Dosage: 715 MG, UNKNOWN
     Route: 042
     Dates: start: 20070806
  21. FOLIC ACID [Concomitant]
     Indication: SUPPLEMENTATION THERAPY
     Dosage: 5 MG, DAILY (1/D)
     Route: 048
     Dates: start: 20070801
  22. VITAMIN B-12 [Concomitant]
     Indication: SUPPLEMENTATION THERAPY
     Dosage: 1000 UG, DAILY (1/D)
     Route: 030
     Dates: start: 20070731, end: 20070731
  23. DEXAMETHASONE 0.5MG TAB [Concomitant]
     Indication: SUPPLEMENTATION THERAPY
     Dosage: 4 MG, 2/D
     Route: 048
     Dates: start: 20070805, end: 20070807

REACTIONS (1)
  - ACUTE LEFT VENTRICULAR FAILURE [None]
